FAERS Safety Report 4385500-5 (Version None)
Quarter: 2004Q2

REPORT INFORMATION
  Report Type: 
  Country: None (occurrence: None)
  Receive Date: 20040622
  Receipt Date: 20040520
  Transmission Date: 20050107
  Serious: Yes (Life-Threatening, Hospitalization)
  Sender: FDA-Public Use
  Company Number: 200404050

PATIENT
  Age: 67 Year
  Sex: Female
  Weight: 73.9363 kg

DRUGS (15)
  1. BOTOX [Suspect]
     Indication: TORTICOLLIS
     Dosage: 325 UNITS ONCE IM
     Route: 030
     Dates: start: 20031003, end: 20031003
  2. BOTOX [Suspect]
     Indication: TORTICOLLIS
     Dates: start: 20040116, end: 20040116
  3. BOTOX [Suspect]
     Indication: TORTICOLLIS
     Dates: start: 20040310, end: 20040310
  4. BOTOX [Suspect]
     Indication: TORTICOLLIS
     Dosage: 400 UNITS ONCE IM
     Route: 030
     Dates: start: 20040423, end: 20040423
  5. NITRO-DUR [Concomitant]
  6. SINGULAIR [Concomitant]
  7. ZOCOR [Concomitant]
  8. THEOPHYLLINE [Concomitant]
  9. DILTIAZEM [Concomitant]
  10. NITROTAB [Concomitant]
  11. PRINIVIL [Concomitant]
  12. PLAVIX [Concomitant]
  13. LASIX [Concomitant]
  14. ULTRACET [Concomitant]
  15. APRAZOLAM [Concomitant]

REACTIONS (10)
  - ANAPHYLACTIC REACTION [None]
  - CARDIAC FAILURE CONGESTIVE [None]
  - CHRONIC OBSTRUCTIVE AIRWAYS DISEASE [None]
  - DILATATION ATRIAL [None]
  - DRUG EFFECT DECREASED [None]
  - EJECTION FRACTION DECREASED [None]
  - LABORATORY TEST ABNORMAL [None]
  - MUSCLE TIGHTNESS [None]
  - PNEUMONIA [None]
  - RESPIRATORY DISORDER [None]
